FAERS Safety Report 21200029 (Version 1)
Quarter: 2022Q3

REPORT INFORMATION
  Report Type: Spontaneous
  Country: US (occurrence: None)
  Receive Date: 20220810
  Receipt Date: 20220810
  Transmission Date: 20221027
  Serious: No
  Sender: FDA-Public Use
  Company Number: None

PATIENT
  Age: 71 Year
  Sex: Male
  Weight: 87.75 kg

DRUGS (10)
  1. BENADRYL GEL [Suspect]
     Active Substance: DIPHENHYDRAMINE HYDROCHLORIDE
     Indication: Arthropod sting
     Dosage: OTHER STRENGTH : 2% HCL;?FREQUENCY : 3 TIMES A DAY;?
     Route: 061
     Dates: start: 20220808, end: 20220809
  2. ATORVASTATIN [Concomitant]
     Active Substance: ATORVASTATIN
  3. IMITREX [Concomitant]
     Active Substance: SUMATRIPTAN SUCCINATE
  4. Glucosomine Chondroitin [Concomitant]
  5. Muti Vitamin [Concomitant]
  6. MAGNESIUM CITRATE [Concomitant]
     Active Substance: MAGNESIUM CITRATE
  7. IRON [Concomitant]
     Active Substance: IRON
  8. Valarien Root [Concomitant]
  9. MELATONIN [Concomitant]
     Active Substance: MELATONIN
  10. Gold Bond Foot Creme [Concomitant]

REACTIONS (8)
  - Arthropod sting [None]
  - Pruritus [None]
  - Erythema [None]
  - Swelling [None]
  - Joint swelling [None]
  - Allergy to arthropod sting [None]
  - Skin warm [None]
  - Application site vesicles [None]

NARRATIVE: CASE EVENT DATE: 20220809
